FAERS Safety Report 24326775 (Version 1)
Quarter: 2024Q3

REPORT INFORMATION
  Report Type: Spontaneous
  Country: US (occurrence: None)
  Receive Date: 20240917
  Receipt Date: 20240917
  Transmission Date: 20241017
  Serious: No
  Sender: ASTRAZENECA
  Company Number: 2024A165445

PATIENT

DRUGS (1)
  1. TEZSPIRE [Suspect]
     Active Substance: TEZEPELUMAB-EKKO

REACTIONS (7)
  - Drug ineffective [Unknown]
  - Asthma [Unknown]
  - Seasonal allergy [Unknown]
  - Mycotic allergy [Unknown]
  - Mite allergy [Unknown]
  - Inflammation [Unknown]
  - Chest discomfort [Unknown]
